FAERS Safety Report 5852091-9 (Version None)
Quarter: 2008Q3

REPORT INFORMATION
  Report Type: 
  Country: None (occurrence: None)
  Receive Date: 20080819
  Receipt Date: 20080819
  Transmission Date: 20090109
  Serious: Yes (Hospitalization)
  Sender: FDA-Public Use
  Company Number: None

PATIENT
  Age: 38 Year
  Sex: Female
  Weight: 72 kg

DRUGS (8)
  1. REGLAN [Suspect]
     Indication: DIABETIC GASTROPARESIS
     Dosage: PO RECENT
     Route: 048
  2. ALLEGRA [Concomitant]
  3. AMBIEN [Concomitant]
  4. VICODIN [Concomitant]
  5. ALBUTEROL [Concomitant]
  6. SYNTHROID [Concomitant]
  7. DIOVAN [Concomitant]
  8. NEXIUM [Concomitant]

REACTIONS (2)
  - HALLUCINATION [None]
  - MENTAL STATUS CHANGES [None]
